FAERS Safety Report 23457467 (Version 2)
Quarter: 2024Q1

REPORT INFORMATION
  Report Type: Spontaneous
  Country: JP (occurrence: JP)
  Receive Date: 20240130
  Receipt Date: 20240312
  Transmission Date: 20240409
  Serious: Yes (Hospitalization)
  Sender: FDA-Public Use
  Company Number: JP-PFIZER INC-PV202400011853

PATIENT
  Age: 73 Year
  Sex: Female
  Weight: 34 kg

DRUGS (10)
  1. VFEND [Suspect]
     Active Substance: VORICONAZOLE
     Indication: Fungal infection
     Dosage: 150 MG, 2X/DAY
     Route: 048
     Dates: start: 20221224, end: 20221224
  2. VFEND [Suspect]
     Active Substance: VORICONAZOLE
     Dosage: 100 MG, 2X/DAY
     Route: 048
     Dates: start: 20221225, end: 20221228
  3. BROTIZOLAM [Concomitant]
     Active Substance: BROTIZOLAM
     Dosage: 0.125 MG, 1X/DAY, BEFORE SLEEP
     Route: 048
     Dates: end: 20221228
  4. CLARITHROMYCIN [Concomitant]
     Active Substance: CLARITHROMYCIN
     Dosage: 200 MG, 1X/DAY, AFTER BREAKFAST
  5. LANSOPRAZOLE [Concomitant]
     Active Substance: LANSOPRAZOLE
     Dosage: 15 MG, 1X/DAY, AFTER BREAKFAST
  6. ATORVASTATIN CALCIUM TRIHYDRATE [Concomitant]
     Active Substance: ATORVASTATIN CALCIUM TRIHYDRATE
     Dosage: 10 MG, 1X/DAY, AFTER BREAKFAST
  7. SULFAMETHOXAZOLE\TRIMETHOPRIM [Concomitant]
     Active Substance: SULFAMETHOXAZOLE\TRIMETHOPRIM
     Dosage: 2T/2X, AFTER BREAKFAST AND DINNER, ONLY ON MONDAY AND THURSDAY
  8. MEDROL [Concomitant]
     Active Substance: METHYLPREDNISOLONE
     Dosage: 4 MG, 1X/DAY, AFTER BREAKFAST
  9. AZILSARTAN KAMEDOXOMIL [Concomitant]
     Active Substance: AZILSARTAN KAMEDOXOMIL
     Dosage: 10 MG, 1X/DAY, AFTER BREAKFAST
  10. ACETAMINOPHEN\TRAMADOL HYDROCHLORIDE [Concomitant]
     Active Substance: ACETAMINOPHEN\TRAMADOL HYDROCHLORIDE
     Dosage: 6T/3X AFTER EVERY MEALS

REACTIONS (3)
  - Altered state of consciousness [Recovering/Resolving]
  - Delirium [Recovering/Resolving]
  - Drug level increased [Recovering/Resolving]

NARRATIVE: CASE EVENT DATE: 20221227
